FAERS Safety Report 18084048 (Version 1)
Quarter: 2020Q3

REPORT INFORMATION
  Report Type: Spontaneous
  Country: FR (occurrence: FR)
  Receive Date: 20200729
  Receipt Date: 20200729
  Transmission Date: 20201103
  Serious: Yes (Other)
  Sender: FDA-Public Use
  Company Number: FR-ALIMERA SCIENCES INC.-FR-A16013-20-004233

PATIENT

DRUGS (1)
  1. ILUVIEN [Suspect]
     Active Substance: FLUOCINOLONE ACETONIDE
     Indication: PRODUCT USED FOR UNKNOWN INDICATION
     Dosage: 0.25 MICROGRAM, QD
     Route: 031
     Dates: start: 20190311, end: 20200629

REACTIONS (2)
  - Ocular hypertension [Not Recovered/Not Resolved]
  - Medical device removal [Not Recovered/Not Resolved]

NARRATIVE: CASE EVENT DATE: 20200526
